FAERS Safety Report 7071326-0 (Version None)
Quarter: 2010Q4

REPORT INFORMATION
  Report Type: 
  Country: None (occurrence: None)
  Receive Date: 20101021
  Receipt Date: 20101009
  Transmission Date: 20110411
  Serious: Yes (Life-Threatening, Hospitalization, Other)
  Sender: FDA-Public Use
  Company Number: 2010AP002174

PATIENT
  Age: 37 Year
  Sex: Female

DRUGS (3)
  1. TOPIRAMATE [Suspect]
     Indication: BIPOLAR DISORDER
     Dosage: 100 MG; BID; PO
     Route: 048
  2. DIAZEPAM [Concomitant]
  3. IBUPROFEN [Concomitant]

REACTIONS (12)
  - ATAXIA [None]
  - BODY TEMPERATURE DECREASED [None]
  - COMA [None]
  - CONVULSION [None]
  - DRUG LEVEL INCREASED [None]
  - DRUG TOXICITY [None]
  - DYSARTHRIA [None]
  - INTENTIONAL OVERDOSE [None]
  - METABOLIC ACIDOSIS [None]
  - NYSTAGMUS [None]
  - SOMNOLENCE [None]
  - SUICIDE ATTEMPT [None]
